FAERS Safety Report 16927212 (Version 1)
Quarter: 2019Q4

REPORT INFORMATION
  Report Type: Spontaneous
  Country: US (occurrence: US)
  Receive Date: 20191016
  Receipt Date: 20191016
  Transmission Date: 20200122
  Serious: Yes (Hospitalization, Other)
  Sender: FDA-Public Use
  Company Number: NVSC2019US002431

PATIENT
  Age: 56 Year
  Sex: Female

DRUGS (1)
  1. LAMISIL [Suspect]
     Active Substance: TERBINAFINE HYDROCHLORIDE
     Indication: LOCALISED INFECTION
     Dosage: UNK
     Route: 065
     Dates: start: 20170909

REACTIONS (19)
  - Septic shock [Unknown]
  - Rash macular [Unknown]
  - Subcorneal pustular dermatosis [Unknown]
  - Thrombophlebitis [Unknown]
  - Fall [Unknown]
  - Blister [Not Recovered/Not Resolved]
  - Leukocytosis [Unknown]
  - Pain [Recovering/Resolving]
  - Rash pruritic [Unknown]
  - Peroneal nerve palsy [Unknown]
  - Hypertension [Unknown]
  - Papilloedema [Unknown]
  - Gait disturbance [Unknown]
  - Lactic acidosis [Unknown]
  - Acute generalised exanthematous pustulosis [Unknown]
  - Pustule [Not Recovered/Not Resolved]
  - Stevens-Johnson syndrome [Unknown]
  - Injury [Unknown]
  - Pemphigus [Unknown]

NARRATIVE: CASE EVENT DATE: 20171016
